FAERS Safety Report 21397711 (Version 1)
Quarter: 2022Q3

REPORT INFORMATION
  Report Type: Spontaneous
  Country: US (occurrence: None)
  Receive Date: 20220930
  Receipt Date: 20220930
  Transmission Date: 20221027
  Serious: Yes (unspecified)
  Sender: FDA-Public Use
  Company Number: None

PATIENT
  Age: 43 Year
  Sex: Female
  Weight: 99 kg

DRUGS (5)
  1. INJECTAFER [Suspect]
     Active Substance: FERRIC CARBOXYMALTOSE
     Indication: Iron deficiency anaemia
     Dosage: OTHER FREQUENCY : ONCE WEEKLY X 2;?
     Route: 042
     Dates: start: 20220829, end: 20220906
  2. OZEMPIC [Concomitant]
     Active Substance: SEMAGLUTIDE
  3. SYNTHROID [Concomitant]
     Active Substance: LEVOTHYROXINE SODIUM
  4. FLUOXETINE [Concomitant]
     Active Substance: FLUOXETINE HYDROCHLORIDE
  5. VITAMIN D3 [Concomitant]
     Active Substance: CHOLECALCIFEROL

REACTIONS (5)
  - Paraesthesia [None]
  - Hypoaesthesia [None]
  - Pain in extremity [None]
  - Fatigue [None]
  - Hypophosphataemia [None]

NARRATIVE: CASE EVENT DATE: 20220906
